FAERS Safety Report 21690847 (Version 1)
Quarter: 2022Q4

REPORT INFORMATION
  Report Type: Report from Study
  Country: CA (occurrence: CA)
  Receive Date: 20221207
  Receipt Date: 20221207
  Transmission Date: 20230113
  Serious: Yes (Hospitalization, Other)
  Sender: FDA-Public Use
  Company Number: CA-HLS-202000019

PATIENT
  Age: 76 Year
  Sex: Male

DRUGS (1)
  1. CLOZARIL [Suspect]
     Active Substance: CLOZAPINE
     Route: 048
     Dates: start: 20131230

REACTIONS (7)
  - Neutrophil count increased [Recovered/Resolved]
  - Cellulitis [Recovering/Resolving]
  - Chronic lymphocytic leukaemia [Recovering/Resolving]
  - Neutrophilia [Unknown]
  - Leukocytosis [Unknown]
  - Leukocytosis [Unknown]
  - Pneumonia [Unknown]

NARRATIVE: CASE EVENT DATE: 20170508
